FAERS Safety Report 24545644 (Version 2)
Quarter: 2025Q1

REPORT INFORMATION
  Report Type: Spontaneous
  Country: US (occurrence: US)
  Receive Date: 20241024
  Receipt Date: 20250203
  Transmission Date: 20250408
  Serious: No
  Sender: PFIZER
  Company Number: US-PFIZER INC-202400284550

PATIENT
  Age: 68 Year
  Sex: Female

DRUGS (17)
  1. XELJANZ [Suspect]
     Active Substance: TOFACITINIB CITRATE
     Dosage: 5 MG, DAILY
     Route: 048
     Dates: start: 2020
  2. XELJANZ [Suspect]
     Active Substance: TOFACITINIB CITRATE
     Dosage: 5 MG, 2X/DAY
     Dates: start: 2020
  3. CALCIUM [Concomitant]
     Active Substance: CALCIUM
  4. CRANBERRY [Concomitant]
     Active Substance: CRANBERRY
  5. VITAMIN D3 [Concomitant]
     Active Substance: CHOLECALCIFEROL
  6. MENAQUINONE 6 [Concomitant]
     Active Substance: MENAQUINONE 6
  7. JUBLIA [Concomitant]
     Active Substance: EFINACONAZOLE
  8. HUMALOG [Concomitant]
     Active Substance: INSULIN LISPRO
  9. FUROSEMIDE [Concomitant]
     Active Substance: FUROSEMIDE
  10. COLCHICINE [Concomitant]
     Active Substance: COLCHICINE
  11. LOSARTAN POTASSIUM [Concomitant]
     Active Substance: LOSARTAN POTASSIUM
  12. GABAPENTIN [Concomitant]
     Active Substance: GABAPENTIN
  13. PREDNISONE [Concomitant]
     Active Substance: PREDNISONE
  14. LEVOTHYROXINE [Concomitant]
     Active Substance: LEVOTHYROXINE
  15. NADOLOL [Concomitant]
     Active Substance: NADOLOL
  16. ALENDRONATE SODIUM [Concomitant]
     Active Substance: ALENDRONATE SODIUM
  17. CALCIUM\CHOLECALCIFEROL [Concomitant]
     Active Substance: CALCIUM\CHOLECALCIFEROL

REACTIONS (4)
  - Rash [Not Recovered/Not Resolved]
  - Weight increased [Not Recovered/Not Resolved]
  - Off label use [Unknown]
  - Fatigue [Not Recovered/Not Resolved]

NARRATIVE: CASE EVENT DATE: 20200101
